FAERS Safety Report 6207365-9 (Version None)
Quarter: 2009Q2

REPORT INFORMATION
  Report Type: 
  Country: None (occurrence: None)
  Receive Date: 20090528
  Receipt Date: 20090516
  Transmission Date: 20091009
  Serious: Yes (Hospitalization)
  Sender: FDA-Public Use
  Company Number: US-PFIZER INC-2009159828

PATIENT
  Sex: Male

DRUGS (11)
  1. AXITINIB [Suspect]
     Indication: COLORECTAL CANCER
     Dosage: 5 MG, 2X/DAY
     Route: 048
     Dates: start: 20081014, end: 20090118
  2. IRINOTECAN HCL [Suspect]
     Indication: COLORECTAL CANCER
     Dosage: 180MG/M2, Q14D, OTO
     Route: 042
     Dates: start: 20081014
  3. CALCIUM FOLINATE [Suspect]
     Indication: COLORECTAL CANCER
     Dosage: 820 MG, OTO, Q14D
     Route: 042
     Dates: start: 20081014
  4. FLUOROURACIL [Suspect]
     Indication: COLORECTAL CANCER
     Dosage: 820 MG, OTO, Q14D
     Route: 040
     Dates: start: 20081014
  5. FLUOROURACIL [Suspect]
     Dosage: 4920 MG, X3D, Q14D
     Route: 041
     Dates: start: 20081014
  6. MORPHINE [Concomitant]
     Indication: ABDOMINAL PAIN
     Dosage: 1 TAB, PRN
     Dates: start: 20080124
  7. LORTAB [Concomitant]
     Indication: ABDOMINAL PAIN
     Dosage: 1 TAB, PRN
     Dates: start: 20080724
  8. LOMOTIL [Concomitant]
     Indication: DIARRHOEA
     Dosage: 1 TAB, PRN
     Dates: start: 20081014
  9. MARINOL [Concomitant]
     Indication: ANOREXIA
     Dosage: UNK MG, 1X/DAY
     Dates: start: 20081028
  10. LORAZEPAM [Concomitant]
     Dosage: UNK
     Route: 048
     Dates: start: 20081111
  11. DECADRON [Concomitant]
     Dosage: UNK
     Route: 048
     Dates: start: 20081111

REACTIONS (2)
  - PNEUMOTHORAX [None]
  - PULMONARY EMBOLISM [None]
